FAERS Safety Report 19893519 (Version 1)
Quarter: 2021Q3

REPORT INFORMATION
  Report Type: Spontaneous
  Country: ES (occurrence: ES)
  Receive Date: 20210929
  Receipt Date: 20210929
  Transmission Date: 20211014
  Serious: Yes (Hospitalization, Other)
  Sender: FDA-Public Use
  Company Number: ES-AUROBINDO-AUR-APL-2019-089150

PATIENT
  Age: 49 Year
  Sex: Male

DRUGS (4)
  1. DULOXETINE. [Suspect]
     Active Substance: DULOXETINE
     Indication: NEURALGIA
     Dosage: 60 MILLIGRAM
     Route: 048
     Dates: start: 20160216, end: 20160223
  2. SINOGAN [Interacting]
     Active Substance: LEVOMEPROMAZINE
     Indication: ANXIETY
     Dosage: 37.5 MILLIGRAM
     Route: 030
     Dates: start: 20160217, end: 20160223
  3. TARGIN [Interacting]
     Active Substance: NALOXONE HYDROCHLORIDE\OXYCODONE HYDROCHLORIDE
     Indication: NEURALGIA
     Dosage: 120 MILLIGRAM
     Route: 048
     Dates: start: 20160218, end: 20160223
  4. LORAZEPAM. [Concomitant]
     Active Substance: LORAZEPAM
     Indication: INSOMNIA
     Dosage: 1 MILLIGRAM
     Route: 048

REACTIONS (2)
  - Hallucination [Recovered/Resolved]
  - Dysphoria [Recovered/Resolved]

NARRATIVE: CASE EVENT DATE: 20160220
